FAERS Safety Report 25211147 (Version 1)
Quarter: 2025Q2

REPORT INFORMATION
  Report Type: Spontaneous
  Country: HR (occurrence: HR)
  Receive Date: 20250417
  Receipt Date: 20250417
  Transmission Date: 20250716
  Serious: Yes (Other)
  Sender: ELI LILLY AND COMPANY
  Company Number: HR-Merck Healthcare KGaA-2025017589

PATIENT
  Sex: Female

DRUGS (4)
  1. ERBITUX [Suspect]
     Active Substance: CETUXIMAB
     Indication: Colon cancer metastatic
     Route: 065
     Dates: start: 201808, end: 201811
  2. IRINOTECAN [Suspect]
     Active Substance: IRINOTECAN
     Indication: Colon cancer metastatic
     Route: 065
     Dates: start: 201808, end: 201811
  3. LEUCOVORIN [Suspect]
     Active Substance: LEUCOVORIN\LEUCOVORIN CALCIUM
     Indication: Colon cancer metastatic
     Route: 065
     Dates: start: 201808, end: 201811
  4. FLUOROURACIL SODIUM [Suspect]
     Active Substance: FLUOROURACIL SODIUM
     Indication: Colon cancer metastatic
     Route: 065
     Dates: start: 201808, end: 201811

REACTIONS (3)
  - Thrombophlebitis [Unknown]
  - Neutropenia [Unknown]
  - Leukopenia [Unknown]
